FAERS Safety Report 18037555 (Version 1)
Quarter: 2020Q3

REPORT INFORMATION
  Report Type: Spontaneous
  Country: US (occurrence: US)
  Receive Date: 20200717
  Receipt Date: 20200717
  Transmission Date: 20201103
  Serious: No
  Sender: FDA-Public Use
  Company Number: US-ELI_LILLY_AND_COMPANY-US202007007257

PATIENT
  Sex: Female

DRUGS (1)
  1. EMGALITY [Suspect]
     Active Substance: GALCANEZUMAB-GNLM
     Indication: PRODUCT USED FOR UNKNOWN INDICATION
     Dosage: 1 DOSAGE FORM, UNKNOWN
     Route: 065

REACTIONS (8)
  - Paraesthesia [Unknown]
  - Feeling abnormal [Recovered/Resolved]
  - Pain [Unknown]
  - Disturbance in attention [Unknown]
  - Gastrointestinal disorder [Recovered/Resolved]
  - Peripheral coldness [Unknown]
  - Oropharyngeal pain [Unknown]
  - Fatigue [Unknown]
